APPROVED DRUG PRODUCT: ALORA
Active Ingredient: ESTRADIOL
Strength: 0.05MG/24HR
Dosage Form/Route: FILM, EXTENDED RELEASE;TRANSDERMAL
Application: N020655 | Product #001
Applicant: ABBVIE INC
Approved: Dec 20, 1996 | RLD: No | RS: No | Type: DISCN